FAERS Safety Report 7510739-7 (Version None)
Quarter: 2011Q2

REPORT INFORMATION
  Report Type: 
  Country: None (occurrence: None)
  Receive Date: 20110530
  Receipt Date: 20110516
  Transmission Date: 20111010
  Serious: Yes (Hospitalization)
  Sender: FDA-Public Use
  Company Number: PHHY2011US42548

PATIENT
  Sex: Male
  Weight: 81.633 kg

DRUGS (3)
  1. ATENOLOL [Concomitant]
     Dosage: 25 MG, UNK
  2. CYCLOBENZAPRINE [Concomitant]
     Dosage: 10 MG, UNK
  3. GLEEVEC [Suspect]
     Dosage: 400 MG, DAILY
     Route: 048
     Dates: start: 20061001

REACTIONS (2)
  - BIPOLAR DISORDER [None]
  - WEIGHT DECREASED [None]
